FAERS Safety Report 9553394 (Version 3)
Quarter: 2014Q4

REPORT INFORMATION
  Report Type: Spontaneous
  Country: DE (occurrence: DE)
  Receive Date: 20130925
  Receipt Date: 20141003
  Transmission Date: 20150529
  Serious: Yes (Life-Threatening, Hospitalization, Other)
  Sender: FDA-Public Use
  Company Number: DE-SANOFI-AVENTIS-2013SA092931

PATIENT
  Age: 56 Year
  Sex: Female

DRUGS (1)
  1. LEFLUNOMIDE WINTHROP [Suspect]
     Active Substance: LEFLUNOMIDE
     Indication: RHEUMATOID ARTHRITIS
     Route: 048
     Dates: start: 201210, end: 201303

REACTIONS (6)
  - Subarachnoid haemorrhage [Recovered/Resolved]
  - Paraesthesia [Recovering/Resolving]
  - Headache [Recovering/Resolving]
  - Hyperaesthesia [Recovering/Resolving]
  - Alopecia [Recovering/Resolving]
  - Vasculitis cerebral [Recovering/Resolving]

NARRATIVE: CASE EVENT DATE: 201303
